FAERS Safety Report 6847721-9 (Version None)
Quarter: 2010Q3

REPORT INFORMATION
  Report Type: 
  Country: None (occurrence: None)
  Receive Date: 20100716
  Receipt Date: 20100712
  Transmission Date: 20110219
  Serious: Yes (Death)
  Sender: FDA-Public Use
  Company Number: PHHY2010US08367

PATIENT
  Sex: Male
  Weight: 84.23 kg

DRUGS (2)
  1. EXJADE [Suspect]
     Indication: MYELODYSPLASTIC SYNDROME
     Dosage: 500 MG DAILY
     Route: 048
     Dates: start: 20090205
  2. EXJADE [Suspect]
     Dosage: 1000 MG, EVERY OTHER DAY
     Route: 048
     Dates: end: 20100208

REACTIONS (2)
  - DEATH [None]
  - PLATELET COUNT ABNORMAL [None]
